FAERS Safety Report 10540668 (Version 1)
Quarter: 2014Q4

REPORT INFORMATION
  Report Type: Spontaneous
  Country: US (occurrence: None)
  Receive Date: 20141023
  Receipt Date: 20141023
  Transmission Date: 20150529
  Serious: No
  Sender: FDA-Public Use
  Company Number: None

PATIENT
  Age: 71 Year
  Sex: Female
  Weight: 74.2 kg

DRUGS (1)
  1. CAMPATH [Suspect]
     Active Substance: ALEMTUZUMAB

REACTIONS (3)
  - Lung infiltration [None]
  - Dyspnoea [None]
  - Cough [None]

NARRATIVE: CASE EVENT DATE: 20111130
